FAERS Safety Report 9348512 (Version 2)
Quarter: 2013Q3

REPORT INFORMATION
  Report Type: Spontaneous
  Country: US (occurrence: US)
  Receive Date: 20130614
  Receipt Date: 20130709
  Transmission Date: 20140515
  Serious: No
  Sender: FDA-Public Use
  Company Number: US-TEVA-412273USA

PATIENT
  Sex: 0

DRUGS (1)
  1. ACTIQ [Suspect]
     Route: 048

REACTIONS (1)
  - Drug ineffective [Not Recovered/Not Resolved]
